FAERS Safety Report 9208161 (Version 3)
Quarter: 2013Q4

REPORT INFORMATION
  Report Type: Spontaneous
  Country: DK (occurrence: GB)
  Receive Date: 20130403
  Receipt Date: 20131014
  Transmission Date: 20140711
  Serious: Yes (Other)
  Sender: FDA-Public Use
  Company Number: GB-FRI-1000043960

PATIENT
  Age: 52 Year
  Sex: Female

DRUGS (2)
  1. CITALOPRAM [Suspect]
     Dosage: 10 TO 20 MG
     Route: 048
     Dates: end: 20130314
  2. CITALOPRAM [Suspect]
     Dosage: 20 MG DAILY
     Route: 048
     Dates: start: 2013

REACTIONS (4)
  - Personality change [Recovering/Resolving]
  - Feeling abnormal [Recovering/Resolving]
  - Dissociative disorder [Recovering/Resolving]
  - Withdrawal syndrome [Recovering/Resolving]
